FAERS Safety Report 25050261 (Version 1)
Quarter: 2025Q1

REPORT INFORMATION
  Report Type: Spontaneous
  Country: GB (occurrence: GB)
  Receive Date: 20250307
  Receipt Date: 20250307
  Transmission Date: 20250409
  Serious: Yes (Life-Threatening, Hospitalization)
  Sender: MYLAN
  Company Number: GB-MYLANLABS-2025M1019631

PATIENT

DRUGS (12)
  1. EPINEPHRINE [Suspect]
     Active Substance: EPINEPHRINE
     Indication: Anaphylactic reaction
  2. EPINEPHRINE [Suspect]
     Active Substance: EPINEPHRINE
  3. CEFUROXIME [Suspect]
     Active Substance: CEFUROXIME
     Indication: Urinary tract infection enterococcal
  4. GENTAMICIN [Concomitant]
     Active Substance: GENTAMICIN
     Indication: Urinary tract infection enterococcal
  5. SEVOFLURANE [Concomitant]
     Active Substance: SEVOFLURANE
     Indication: Endotracheal intubation
  6. PROPOFOL [Concomitant]
     Active Substance: PROPOFOL
     Indication: Endotracheal intubation
  7. ATRACURIUM [Concomitant]
     Active Substance: ATRACURIUM
     Indication: Endotracheal intubation
  8. LEVOBUPIVACAINE [Concomitant]
     Active Substance: LEVOBUPIVACAINE
     Indication: Local anaesthesia
  9. DEXAMETHASONE [Concomitant]
     Active Substance: DEXAMETHASONE
     Indication: Urinary tract infection enterococcal
  10. ELECTROLYTES NOS [Concomitant]
     Active Substance: ELECTROLYTES NOS
     Indication: Fluid replacement
  11. HYDROCORTISONE [Concomitant]
     Active Substance: HYDROCORTISONE
     Indication: Anaphylactic reaction
  12. CHLORPHENIRAMINE MALEATE [Concomitant]
     Active Substance: CHLORPHENIRAMINE MALEATE
     Indication: Anaphylactic reaction

REACTIONS (3)
  - Anaphylactic reaction [Recovered/Resolved]
  - Toxicity to various agents [Recovered/Resolved]
  - Stress cardiomyopathy [Recovered/Resolved]
